FAERS Safety Report 16589057 (Version 2)
Quarter: 2019Q4

REPORT INFORMATION
  Report Type: Report from Study
  Country: FR (occurrence: FR)
  Receive Date: 20190718
  Receipt Date: 20191018
  Transmission Date: 20200122
  Serious: Yes (Other)
  Sender: FDA-Public Use
  Company Number: FR-REGENERON PHARMACEUTICALS, INC.-2019-43036

PATIENT

DRUGS (18)
  1. CEMIPLIMAB [Suspect]
     Active Substance: CEMIPLIMAB
     Dosage: 183 MG, QCY
     Dates: start: 20190305, end: 20190305
  2. AMLODIPINE [Suspect]
     Active Substance: AMLODIPINE BESYLATE
     Indication: PREHYPERTENSION
     Dosage: 10 MG, QD,1-0-0
     Route: 048
     Dates: start: 20190216, end: 20190610
  3. FOLIC ACID ARROW [Concomitant]
     Active Substance: FOLIC ACID
     Indication: VITAMIN SUPPLEMENTATION
     Dosage: 5 MG, QD
     Route: 048
     Dates: start: 20190305
  4. BISOPROLOL CRISTER [Concomitant]
     Indication: PREHYPERTENSION
     Dosage: 5 MG, QD
     Route: 048
     Dates: start: 201802
  5. TAZOCILLINE [Concomitant]
     Active Substance: PIPERACILLIN SODIUM\TAZOBACTAM SODIUM
     Indication: INFECTION
     Dosage: 4 MG, BID,1-0-1
     Route: 042
     Dates: start: 20190223, end: 20190319
  6. BACTRIM [Concomitant]
     Active Substance: SULFAMETHOXAZOLE\TRIMETHOPRIM
     Indication: INFECTION
     Dosage: 1 DF, QD,1-0-0
     Route: 048
     Dates: start: 201607, end: 20190313
  7. TRANSIPEG                          /00754501/ [Concomitant]
     Active Substance: POLYETHYLENE GLYCOL 3350
     Indication: CONSTIPATION
     Dosage: UNK
     Route: 048
     Dates: start: 20190315
  8. ATORVASTATINE CRISTERS [Suspect]
     Active Substance: ATORVASTATIN CALCIUM
     Indication: DYSLIPIDAEMIA
     Dosage: 10 MG, QD
     Route: 048
     Dates: start: 20190216, end: 20190610
  9. PANTOPRAZOLE CRISTERS [Concomitant]
     Indication: GASTROOESOPHAGEAL REFLUX DISEASE
     Dosage: 20 MG, QD,0-0-1
     Route: 048
     Dates: start: 20190315
  10. HEPARIN CALCIUM [Concomitant]
     Active Substance: HEPARIN CALCIUM
     Indication: THROMBOSIS
     Dosage: Q1 DF, BID,1-0-1
     Route: 058
     Dates: start: 20190313
  11. TRAMADOL BIOGARAN [Concomitant]
     Active Substance: TRAMADOL
     Indication: ANALGESIC INTERVENTION SUPPORTIVE THERAPY
     Dosage: 50 MG, BID,1-0-1
     Route: 048
     Dates: start: 20190313
  12. PREDNISOLONE CRISTERS [Concomitant]
     Indication: PROPHYLAXIS AGAINST TRANSPLANT REJECTION
     Dosage: 10 MG, QD
     Route: 048
     Dates: start: 201612
  13. DOLIPRANE [Concomitant]
     Active Substance: ACETAMINOPHEN
     Indication: ANALGESIC INTERVENTION SUPPORTIVE THERAPY
     Dosage: 500 MG, PRN
     Route: 048
     Dates: start: 20190208
  14. EUPRESSYL                          /00631801/ [Concomitant]
     Active Substance: URAPIDIL
     Indication: PREHYPERTENSION
     Dosage: 60 MG, TID,1-1-1
     Route: 048
     Dates: start: 20190305
  15. UVEDOSE [Concomitant]
     Active Substance: CHOLECALCIFEROL
     Indication: VITAMIN D DEFICIENCY
     Dosage: 1 DF, Q3M
     Route: 048
     Dates: start: 201708, end: 20190319
  16. CEMIPLIMAB [Suspect]
     Active Substance: CEMIPLIMAB
     Indication: SQUAMOUS CELL CARCINOMA OF SKIN
     Dosage: 183 MG, QCY
     Route: 042
     Dates: start: 20190118, end: 20190118
  17. RILMENIDINE ZYDUS [Concomitant]
     Indication: PREHYPERTENSION
     Dosage: 2 MG, BID
     Route: 048
     Dates: start: 201710
  18. ZOPICLONE [Concomitant]
     Active Substance: ZOPICLONE
     Indication: INSOMNIA
     Dosage: 7.5 MG, QD
     Route: 048
     Dates: start: 20190305

REACTIONS (1)
  - Cholestasis [Not Recovered/Not Resolved]

NARRATIVE: CASE EVENT DATE: 20190402
